FAERS Safety Report 13332567 (Version 2)
Quarter: 2017Q2

REPORT INFORMATION
  Report Type: Spontaneous
  Country: GB (occurrence: GB)
  Receive Date: 20170314
  Receipt Date: 20170406
  Transmission Date: 20170830
  Serious: Yes (Other)
  Sender: FDA-Public Use
  Company Number: GB-CONCORDIA PHARMACEUTICALS INC.-E2B_00008064

PATIENT
  Age: 32 Year
  Sex: Female

DRUGS (7)
  1. PREDNISOLONE. [Suspect]
     Active Substance: PREDNISOLONE
     Indication: DERMATOMYOSITIS
     Dates: start: 201501
  2. AZATHIOPRINE. [Suspect]
     Active Substance: AZATHIOPRINE
     Indication: DERMATOMYOSITIS
     Dates: start: 201501
  3. PREDNISOLONE. [Suspect]
     Active Substance: PREDNISOLONE
     Dosage: DECREASED TO 5 MG DAILY
     Dates: start: 201509
  4. RITUXIMAB [Suspect]
     Active Substance: RITUXIMAB
     Dates: start: 201403
  5. RITUXIMAB [Suspect]
     Active Substance: RITUXIMAB
     Dates: start: 201501
  6. CYCLOPHOSPHAMIDE. [Concomitant]
     Active Substance: CYCLOPHOSPHAMIDE
     Route: 042
     Dates: start: 2011
  7. RITUXIMAB [Suspect]
     Active Substance: RITUXIMAB
     Indication: DERMATOMYOSITIS
     Dates: start: 201305

REACTIONS (4)
  - Encephalitis viral [Recovering/Resolving]
  - Anterograde amnesia [Not Recovered/Not Resolved]
  - Human herpesvirus 6 infection [Recovering/Resolving]
  - Pancytopenia [Unknown]
